FAERS Safety Report 15602483 (Version 1)
Quarter: 2018Q4

REPORT INFORMATION
  Report Type: Spontaneous
  Country: DE (occurrence: DE)
  Receive Date: 20181109
  Receipt Date: 20181109
  Transmission Date: 20190205
  Serious: Yes (Other)
  Sender: FDA-Public Use
  Company Number: DE-PFIZER INC-2018455312

PATIENT
  Age: 61 Year
  Sex: Male
  Weight: 124 kg

DRUGS (1)
  1. ATORVASTATIN PFIZER [Suspect]
     Active Substance: ATORVASTATIN
     Indication: LOW DENSITY LIPOPROTEIN INCREASED
     Dosage: 40 MG, 1X/DAY
     Route: 048
     Dates: start: 201606, end: 201809

REACTIONS (1)
  - Mastitis [Recovering/Resolving]

NARRATIVE: CASE EVENT DATE: 201809
